FAERS Safety Report 4844956-1 (Version None)
Quarter: 2005Q4

REPORT INFORMATION
  Report Type: 
  Country: None (occurrence: None)
  Receive Date: 20051128
  Receipt Date: 20051116
  Transmission Date: 20060501
  Serious: Yes (Life-Threatening, Hospitalization)
  Sender: FDA-Public Use
  Company Number: 2005-10-1462

PATIENT
  Sex: Male

DRUGS (3)
  1. PEG-INTERFERON ALFA-2B INJECTABLE [Suspect]
     Indication: HEPATITIS C
     Dates: start: 20050801
  2. RIBAVIRIN [Suspect]
     Indication: HEPATITIS C
     Dosage: ORAL
     Route: 048
     Dates: start: 20050801
  3. ATENOLOL [Concomitant]

REACTIONS (1)
  - DEPRESSED LEVEL OF CONSCIOUSNESS [None]
